FAERS Safety Report 20039941 (Version 1)
Quarter: 2021Q4

REPORT INFORMATION
  Report Type: Spontaneous
  Country: GB (occurrence: GB)
  Receive Date: 20211106
  Receipt Date: 20211106
  Transmission Date: 20220303
  Serious: Yes (Other)
  Sender: FDA-Public Use
  Company Number: GB-LICONSA-2021-009233

PATIENT
  Age: 39 Year
  Sex: Male

DRUGS (2)
  1. OMEPRAZOLE [Suspect]
     Active Substance: OMEPRAZOLE
     Indication: Duodenal ulcer
     Dosage: 20 MILLIGRAM DAILY;
     Route: 048
     Dates: start: 20200810
  2. OMEPRAZOLE [Suspect]
     Active Substance: OMEPRAZOLE
     Indication: Gastrooesophageal reflux disease

REACTIONS (5)
  - Haemorrhage [Recovered/Resolved]
  - Genital swelling [Recovered/Resolved]
  - Burning sensation [Recovered/Resolved]
  - Gastrooesophageal reflux disease [Recovered/Resolved]
  - Product odour abnormal [Recovered/Resolved]
